FAERS Safety Report 4751477-3 (Version None)
Quarter: 2005Q3

REPORT INFORMATION
  Report Type: 
  Country: None (occurrence: None)
  Receive Date: 20050824
  Receipt Date: 20050629
  Transmission Date: 20060218
  Serious: Yes (Hospitalization, Other)
  Sender: FDA-Public Use
  Company Number: US-BRISTOL-MYERS SQUIBB COMPANY-13020722

PATIENT
  Age: 72 Year
  Sex: Male
  Weight: 111 kg

DRUGS (5)
  1. CETUXIMAB [Suspect]
     Indication: NON-SMALL CELL LUNG CANCER STAGE IIIB
     Dosage: PER PROTOCOL, DUETO}2WEEKDELAYINTREATMENTCAUSEDBYHOSPITALIZATION,PTREMOVEDFROM PROTOCOL 12-JUL-2005.
     Route: 042
     Dates: start: 20050621, end: 20050621
  2. GEMCITABINE [Suspect]
     Indication: NON-SMALL CELL LUNG CANCER STAGE IIIB
     Dosage: 1000 MG/M2 WEEKLY X 4 THEN WEEKLY X 3 WITH THE 4TH WEEK REST/PT REMOVED FROM PROTOCOL 12-JUL-2005.
     Route: 042
  3. RADIATION THERAPY [Suspect]
     Indication: NON-SMALL CELL LUNG CANCER STAGE IIIB
  4. CARBOPLATIN [Suspect]
  5. TAXOL [Suspect]

REACTIONS (6)
  - CONSTIPATION [None]
  - DEHYDRATION [None]
  - DIZZINESS [None]
  - DYSPNOEA [None]
  - EPISTAXIS [None]
  - NEUTROPENIA [None]
